FAERS Safety Report 6300987-6 (Version None)
Quarter: 2009Q3

REPORT INFORMATION
  Report Type: 
  Country: None (occurrence: None)
  Receive Date: 20090807
  Receipt Date: 20090728
  Transmission Date: 20100115
  Serious: Yes (Hospitalization)
  Sender: FDA-Public Use
  Company Number: US-JNJFOC-20090505380

PATIENT
  Sex: Female
  Weight: 56.7 kg

DRUGS (23)
  1. REMICADE [Suspect]
     Route: 042
  2. REMICADE [Suspect]
     Route: 042
  3. REMICADE [Suspect]
     Indication: RHEUMATOID ARTHRITIS
     Route: 042
  4. LEVAQUIN [Suspect]
     Indication: LIMB INJURY
     Dosage: RECEIVED FULL COURSE
     Route: 065
  5. ZITHROMAX [Suspect]
     Indication: LESION EXCISION
  6. LORTAB [Concomitant]
  7. ZYRTEC [Concomitant]
  8. VITAMIN B-12 [Concomitant]
  9. SYNTHROID [Concomitant]
  10. SINGULAIR [Concomitant]
  11. PRILOSEC [Concomitant]
  12. MAGNESIUM OXIDE [Concomitant]
  13. LISINOPRIL [Concomitant]
  14. LASIX [Concomitant]
  15. POTASSIUM CHLORIDE [Concomitant]
  16. FOLIC ACID [Concomitant]
  17. CELEBREX [Concomitant]
  18. BUSPAR [Concomitant]
  19. AVANDAMET [Concomitant]
  20. ALENDRONATE SODIUM [Concomitant]
  21. ASTELIN [Concomitant]
     Route: 045
  22. VITAMIN C WITH IRON [Concomitant]
  23. IRON SULFATETHIAMIN COMPOUND TAB [Concomitant]

REACTIONS (9)
  - CENTRAL NERVOUS SYSTEM LESION [None]
  - CONVULSION [None]
  - GASTROENTERITIS [None]
  - LIMB INJURY [None]
  - LIPASE INCREASED [None]
  - RENAL FAILURE ACUTE [None]
  - SEPTIC SHOCK [None]
  - SKIN LESION [None]
  - SMALL INTESTINAL OBSTRUCTION [None]
